FAERS Safety Report 8350765-1 (Version None)
Quarter: 2012Q2

REPORT INFORMATION
  Report Type: 
  Country: None (occurrence: None)
  Receive Date: 20120510
  Receipt Date: 20120503
  Transmission Date: 20120825
  Serious: Yes (Congenital Anomaly)
  Sender: FDA-Public Use
  Company Number: US-GLAXOSMITHKLINE-A0976993A

PATIENT
  Sex: Male
  Weight: 3.1 kg

DRUGS (6)
  1. MULTI-VITAMINS [Concomitant]
  2. GLUCOPHAGE [Concomitant]
  3. PAXIL [Suspect]
     Indication: PRODUCT USED FOR UNKNOWN INDICATION
     Route: 064
  4. XENICAL [Concomitant]
  5. SYNTHROID [Concomitant]
  6. INSULIN [Concomitant]

REACTIONS (2)
  - FOETAL EXPOSURE DURING PREGNANCY [None]
  - CONGENITAL ANOMALY [None]
